FAERS Safety Report 12240761 (Version 1)
Quarter: 2016Q2

REPORT INFORMATION
  Report Type: Spontaneous
  Country: US (occurrence: US)
  Receive Date: 20160406
  Receipt Date: 20160406
  Transmission Date: 20160815
  Serious: No
  Sender: FDA-Public Use
  Company Number: US-TEVA-559853USA

PATIENT
  Age: 94 Year

DRUGS (1)
  1. SUCRALFATE. [Suspect]
     Active Substance: SUCRALFATE
     Dosage: 4 GRAM DAILY; BEFORE MEALS AND BEDTIME

REACTIONS (4)
  - Speech disorder [Unknown]
  - Rash [Unknown]
  - Hallucination [Unknown]
  - Swollen tongue [Unknown]
